FAERS Safety Report 7774852-1 (Version None)
Quarter: 2011Q3

REPORT INFORMATION
  Report Type: 
  Country: None (occurrence: None)
  Receive Date: 20110921
  Receipt Date: 20110615
  Transmission Date: 20111222
  Serious: Yes (Hospitalization)
  Sender: FDA-Public Use
  Company Number: UTC-007946

PATIENT
  Age: 57 Year
  Sex: Female
  Weight: 129.3 kg

DRUGS (4)
  1. ADCIRCA [Concomitant]
  2. DIURETICS (DIURETICS) [Concomitant]
  3. TYVASO [Suspect]
     Indication: PULMONARY HYPERTENSION
     Dosage: 18-54 MCGS (4 IN 1 D), INHALATION
     Route: 055
     Dates: start: 20110426
  4. TRACLEER [Concomitant]

REACTIONS (1)
  - PNEUMONIA [None]
